FAERS Safety Report 5987218-1 (Version None)
Quarter: 2008Q4

REPORT INFORMATION
  Report Type: 
  Country: None (occurrence: None)
  Receive Date: 20081209
  Receipt Date: 20081203
  Transmission Date: 20090506
  Serious: Yes (Other)
  Sender: FDA-Public Use
  Company Number: US-AVENTIS-200818163US

PATIENT
  Sex: Female

DRUGS (6)
  1. LANTUS [Suspect]
     Route: 058
     Dates: start: 20080101
  2. GLUCOPHAGE [Concomitant]
     Dosage: DOSE: UNK
  3. GLIPIZIDE [Concomitant]
     Dosage: DOSE: UNK
  4. UNIVASC [Concomitant]
     Dosage: DOSE: UNK
  5. CARVEDILOL [Concomitant]
     Dosage: DOSE: UNK
  6. ASPIRIN [Concomitant]
     Dosage: DOSE: UNK

REACTIONS (2)
  - MYOCARDIAL INFARCTION [None]
  - SWELLING [None]
